FAERS Safety Report 16040332 (Version 3)
Quarter: 2019Q4

REPORT INFORMATION
  Report Type: Report from Study
  Country: CA (occurrence: CA)
  Receive Date: 20190306
  Receipt Date: 20191118
  Transmission Date: 20200122
  Serious: Yes (Hospitalization)
  Sender: FDA-Public Use
  Company Number: CA-ROCHE-2256790

PATIENT
  Age: 54 Year
  Sex: Male
  Weight: 100 kg

DRUGS (8)
  1. OCREVUS [Suspect]
     Active Substance: OCRELIZUMAB
     Indication: PRIMARY PROGRESSIVE MULTIPLE SCLEROSIS
     Dosage: 300 MG AT DAY 0 AND 14, THEN 600 MG EVERY 6 MONTHS ;ONGOING: YES
     Route: 042
     Dates: start: 20181114
  2. OCREVUS [Suspect]
     Active Substance: OCRELIZUMAB
     Route: 042
  3. AMIODARONE [Concomitant]
     Active Substance: AMIODARONE
     Dosage: ONGOING-YES
     Route: 002
  4. LINAGLIPTIN [Concomitant]
     Active Substance: LINAGLIPTIN
     Dosage: ONGOING-YES
     Route: 065
  5. GLICLAZIDE [Concomitant]
     Active Substance: GLICLAZIDE
     Dosage: ONGOING-YES
     Route: 002
  6. PRASUGREL. [Concomitant]
     Active Substance: PRASUGREL
     Dosage: ONGOING-YES
     Route: 065
  7. LASIX [Concomitant]
     Active Substance: FUROSEMIDE
     Dosage: ONGOING-YES
     Route: 002
  8. HYDRALAZINE [Concomitant]
     Active Substance: HYDRALAZINE HYDROCHLORIDE
     Dosage: ONGOING-YES
     Route: 065

REACTIONS (3)
  - Myocardial infarction [Recovering/Resolving]
  - Pulmonary oedema [Recovering/Resolving]
  - Respiratory distress [Recovered/Resolved]

NARRATIVE: CASE EVENT DATE: 201901
